FAERS Safety Report 5795429-3 (Version None)
Quarter: 2008Q2

REPORT INFORMATION
  Report Type: 
  Country: None (occurrence: None)
  Receive Date: 20080630
  Receipt Date: 20080618
  Transmission Date: 20081010
  Serious: Yes (Other)
  Sender: FDA-Public Use
  Company Number: US-PFIZER INC-2008000079

PATIENT
  Sex: Male

DRUGS (3)
  1. CHANTIX [Suspect]
     Dates: start: 20070701, end: 20070901
  2. VIAGRA [Suspect]
  3. QUININE SULFATE [Concomitant]

REACTIONS (9)
  - AGGRESSION [None]
  - BODY TEMPERATURE INCREASED [None]
  - CORONARY ARTERY DISEASE [None]
  - DRUG INEFFECTIVE [None]
  - DYSGEUSIA [None]
  - ERECTILE DYSFUNCTION [None]
  - MUSCLE SPASMS [None]
  - URINE ODOUR ABNORMAL [None]
  - WEIGHT DECREASED [None]
